FAERS Safety Report 9979754 (Version 1)
Quarter: 2014Q1

REPORT INFORMATION
  Report Type: Report from Study
  Country: US (occurrence: US)
  Receive Date: 20140306
  Receipt Date: 20140306
  Transmission Date: 20141002
  Serious: No
  Sender: FDA-Public Use
  Company Number: US-ABBVIE-13P-163-1172490-00

PATIENT
  Sex: Female

DRUGS (8)
  1. HUMIRA [Suspect]
     Indication: RHEUMATOID ARTHRITIS
     Dates: start: 20130905
  2. HYDROXYZINE [Concomitant]
     Indication: PRURITUS
  3. PROZAC [Concomitant]
     Indication: DEPRESSION
     Dates: end: 20131031
  4. ZYRTEC [Concomitant]
     Indication: HYPERSENSITIVITY
  5. IBUPROFEN [Concomitant]
     Indication: PAIN
  6. ALBUTEROL [Concomitant]
     Indication: PRODUCT USED FOR UNKNOWN INDICATION
  7. LATUDA [Concomitant]
     Indication: DEPRESSION
     Dates: start: 20131031
  8. LATUDA [Concomitant]

REACTIONS (2)
  - Arthralgia [Not Recovered/Not Resolved]
  - Back pain [Not Recovered/Not Resolved]
